FAERS Safety Report 12217485 (Version 1)
Quarter: 2016Q1

REPORT INFORMATION
  Report Type: Spontaneous
  Country: GH (occurrence: GH)
  Receive Date: 20160329
  Receipt Date: 20160329
  Transmission Date: 20160526
  Serious: Yes (Other)
  Sender: FDA-Public Use
  Company Number: GH-ASTRAZENECA-2016SE32642

PATIENT
  Age: 61 Year
  Sex: Male

DRUGS (2)
  1. KOMBIGLYZE XR [Suspect]
     Active Substance: METFORMIN HYDROCHLORIDE\SAXAGLIPTIN HYDROCHLORIDE
     Dosage: 2.5/1000MG
     Route: 048
  2. AMARYL [Concomitant]
     Active Substance: GLIMEPIRIDE

REACTIONS (4)
  - Dyspnoea [Unknown]
  - Chest pain [Unknown]
  - Asthenia [Unknown]
  - Insomnia [Unknown]
